FAERS Safety Report 9483252 (Version 1)
Quarter: 2013Q3

REPORT INFORMATION
  Report Type: Spontaneous
  Country: US (occurrence: US)
  Receive Date: 20130828
  Receipt Date: 20130828
  Transmission Date: 20140515
  Serious: Yes (Death)
  Sender: FDA-Public Use
  Company Number: US-AMGEN-KDL245322

PATIENT
  Age: 61 Year
  Sex: Female

DRUGS (3)
  1. PROCRIT [Suspect]
     Indication: ANAEMIA OF MALIGNANT DISEASE
     Dosage: UNK UNK, UNK
     Route: 065
     Dates: end: 200702
  2. BEVACIZUMAB [Concomitant]
     Dosage: UNK UNK, UNK
     Route: 065
  3. DEXAMETHASONE [Concomitant]
     Dosage: 20 MG, UNK
     Route: 065

REACTIONS (1)
  - Death [Fatal]
